FAERS Safety Report 6549773-2 (Version None)
Quarter: 2010Q1

REPORT INFORMATION
  Report Type: 
  Country: None (occurrence: None)
  Receive Date: 20100125
  Receipt Date: 20100114
  Transmission Date: 20100710
  Serious: Yes (Hospitalization)
  Sender: FDA-Public Use
  Company Number: US-ASTRAZENECA-2010SE01710

PATIENT
  Age: 93 Year
  Sex: Female

DRUGS (8)
  1. SEROQUEL [Suspect]
     Indication: ABNORMAL BEHAVIOUR
     Route: 048
     Dates: start: 20080101
  2. ARICEPT [Concomitant]
  3. ASPIRIN [Concomitant]
  4. DIAZIDE [Concomitant]
  5. NAMENA [Concomitant]
  6. NORVASC [Concomitant]
  7. REMERON [Concomitant]
  8. SYNTHROID [Concomitant]

REACTIONS (2)
  - SEDATION [None]
  - URINARY TRACT INFECTION [None]
